FAERS Safety Report 6837327-X (Version None)
Quarter: 2010Q3

REPORT INFORMATION
  Report Type: 
  Country: None (occurrence: None)
  Receive Date: 20100713
  Receipt Date: 20070509
  Transmission Date: 20110219
  Serious: No
  Sender: FDA-Public Use
  Company Number: US-PFIZER INC-2007038456

PATIENT
  Age: 60 Year
  Sex: Male
  Weight: 104.5 kg

DRUGS (9)
  1. CHANTIX [Suspect]
     Indication: SMOKING CESSATION THERAPY
     Dates: start: 20070101
  2. ATIVAN [Interacting]
     Indication: ANXIETY
  3. ZOCOR [Concomitant]
  4. REMERON [Concomitant]
  5. METFORMIN [Concomitant]
  6. ACTOS [Concomitant]
  7. HUMULIN R [Concomitant]
  8. FOLTX [Concomitant]
  9. ISOSORBIDE [Concomitant]

REACTIONS (3)
  - ABNORMAL BEHAVIOUR [None]
  - ANXIETY [None]
  - DRUG INTERACTION [None]
